FAERS Safety Report 20089484 (Version 1)
Quarter: 2021Q4

REPORT INFORMATION
  Report Type: Spontaneous
  Country: US (occurrence: US)
  Receive Date: 20211119
  Receipt Date: 20211119
  Transmission Date: 20220303
  Serious: No
  Sender: FDA-Public Use
  Company Number: US-TEVA-2021-US-1979748

PATIENT
  Sex: Female

DRUGS (1)
  1. AJOVY [Suspect]
     Active Substance: FREMANEZUMAB-VFRM
     Indication: Migraine
     Dosage: STRENGTH: 225 MG / 1.5 ML/USING ALMOST A YEAR
     Route: 065

REACTIONS (5)
  - Drug ineffective [Unknown]
  - Injection site erythema [Unknown]
  - Injection site bruising [Unknown]
  - Device leakage [Unknown]
  - Device malfunction [Unknown]
